FAERS Safety Report 19161425 (Version 10)
Quarter: 2021Q3

REPORT INFORMATION
  Report Type: Report from Study
  Country: CN (occurrence: CN)
  Receive Date: 20210421
  Receipt Date: 20210924
  Transmission Date: 20211014
  Serious: Yes (Death, Hospitalization)
  Sender: FDA-Public Use
  Company Number: CN-ROCHE-2812913

PATIENT
  Age: 68 Year
  Sex: Male
  Weight: 72 kg

DRUGS (40)
  1. PEMETREXED. [Suspect]
     Active Substance: PEMETREXED
     Indication: NON-SMALL CELL LUNG CANCER
     Dosage: ON 07/APR/2021, MOST RECENT DOSE (920 MG) RECEIVED PRIOR TO AE/SAE
     Route: 042
     Dates: start: 20210201
  2. ATEZOLIZUMAB. [Suspect]
     Active Substance: ATEZOLIZUMAB
     Indication: NON-SMALL CELL LUNG CANCER
     Dosage: ON 07/APR/2021, MOST RECENT DOSE (1200 MG) RECEIVED PRIOR TO AE/SAE
     Route: 041
     Dates: start: 20210201
  3. DEXAMETHASONE. [Concomitant]
     Active Substance: DEXAMETHASONE
     Dates: start: 20210527, end: 20210529
  4. DEXAMETHASONE SODIUM PHOSPHATE. [Concomitant]
     Active Substance: DEXAMETHASONE SODIUM PHOSPHATE
     Dates: start: 20210430, end: 20210430
  5. RECOMBINANT HUMAN ERYTHROPOIETIN [Concomitant]
     Active Substance: ERYTHROPOIETIN
     Indication: ANAEMIA
     Dates: start: 20210421, end: 20210507
  6. HUMAN SERUM ALBUMIN [Concomitant]
     Active Substance: ALBUMIN HUMAN
     Dates: start: 20210609, end: 20210610
  7. MEROPENEM. [Concomitant]
     Active Substance: MEROPENEM
     Indication: PNEUMONIA
     Dates: start: 20210608, end: 20210612
  8. GANCICLOVIR. [Concomitant]
     Active Substance: GANCICLOVIR
     Indication: PNEUMONIA
     Dates: start: 20210610, end: 20210612
  9. DOPAMINE [Concomitant]
     Active Substance: DOPAMINE HYDROCHLORIDE
     Dates: start: 20210608, end: 20210608
  10. DEXAMETHASONE. [Concomitant]
     Active Substance: DEXAMETHASONE
     Dates: start: 20210406, end: 20210408
  11. DEXAMETHASONE SODIUM PHOSPHATE. [Concomitant]
     Active Substance: DEXAMETHASONE SODIUM PHOSPHATE
     Dates: start: 20210611, end: 20210611
  12. ADRENALIN [Concomitant]
     Active Substance: EPINEPHRINE
     Dates: start: 20210608, end: 20210608
  13. DEXAMETHASONE. [Concomitant]
     Active Substance: DEXAMETHASONE
     Dates: start: 20210316, end: 20210318
  14. TROPISETRON HYDROCHLORIDE [Concomitant]
     Active Substance: TROPISETRON HYDROCHLORIDE
     Dates: start: 20210528, end: 20210530
  15. PENCICLOVIR. [Concomitant]
     Active Substance: PENCICLOVIR
     Indication: PNEUMONIA
  16. HEPARINE SODIUM [Concomitant]
     Active Substance: HEPARIN SODIUM
     Indication: PROPHYLAXIS
     Dates: start: 20210608, end: 20210612
  17. TORASEMIDE [Concomitant]
     Active Substance: TORSEMIDE
     Dates: start: 20210608, end: 20210608
  18. MIDAZOLAM. [Concomitant]
     Active Substance: MIDAZOLAM
     Dates: start: 20210608, end: 20210612
  19. DEXAMETHASONE. [Concomitant]
     Active Substance: DEXAMETHASONE
     Dates: start: 20210507, end: 20210509
  20. TROPISETRON HYDROCHLORIDE [Concomitant]
     Active Substance: TROPISETRON HYDROCHLORIDE
     Dates: start: 20210407, end: 20210409
  21. HUMAN SERUM ALBUMIN [Concomitant]
     Active Substance: ALBUMIN HUMAN
     Indication: HYPOALBUMINAEMIA
     Dates: start: 20210508, end: 20210512
  22. DOXOFYLLINE [Concomitant]
     Active Substance: DOXOFYLLINE
     Indication: PNEUMONIA
     Dates: start: 20210608, end: 20210611
  23. AMBROXOL [Concomitant]
     Active Substance: AMBROXOL
     Indication: PNEUMONIA
     Dates: start: 20210608, end: 20210610
  24. OMEPRAZOLE SODIUM [Concomitant]
     Active Substance: OMEPRAZOLE SODIUM
     Dates: start: 20210608, end: 20210612
  25. REMIFENTANIL [Concomitant]
     Active Substance: REMIFENTANIL
     Dates: start: 20210608, end: 20210611
  26. CALCIUM GLUCONATE. [Concomitant]
     Active Substance: CALCIUM GLUCONATE
     Indication: MINERAL SUPPLEMENTATION
     Dates: start: 20210608, end: 20210611
  27. BEVACIZUMAB. [Suspect]
     Active Substance: BEVACIZUMAB
     Indication: NON-SMALL CELL LUNG CANCER
     Dosage: ON 07/APR/2021, MOST RECENT DOSE (1065 MG) RECEIVED PRIOR TO AE/SAE
     Route: 042
     Dates: start: 20210201
  28. PENCICLOVIR. [Concomitant]
     Active Substance: PENCICLOVIR
     Indication: PROPHYLAXIS
     Dates: start: 20210608, end: 20210609
  29. MONTMORILLONITE [Concomitant]
     Active Substance: MONTMORILLONITE
     Dates: start: 20210609, end: 20210611
  30. FUROSEMIDE. [Concomitant]
     Active Substance: FUROSEMIDE
     Indication: MYOCARDITIS
     Dates: start: 20210608, end: 20210611
  31. SODIUM BICARBONATE. [Concomitant]
     Active Substance: SODIUM BICARBONATE
     Dates: start: 20210608, end: 20210610
  32. CARBOPLATIN. [Suspect]
     Active Substance: CARBOPLATIN
     Indication: NON-SMALL CELL LUNG CANCER
     Dosage: ON 07/APR/2021, MOST RECENT DOSE (593 MG) RECEIVED PRIOR TO AE/SAE
     Route: 042
     Dates: start: 20210201
  33. TROPISETRON HYDROCHLORIDE [Concomitant]
     Active Substance: TROPISETRON HYDROCHLORIDE
     Dates: start: 20210317, end: 20210319
  34. TROPISETRON HYDROCHLORIDE [Concomitant]
     Active Substance: TROPISETRON HYDROCHLORIDE
     Dates: start: 20210508, end: 20210512
  35. VITAMIN B12 [Concomitant]
     Active Substance: CYANOCOBALAMIN
     Dates: start: 20210407, end: 20210407
  36. DEXAMETHASONE SODIUM PHOSPHATE. [Concomitant]
     Active Substance: DEXAMETHASONE SODIUM PHOSPHATE
     Dates: start: 20210419, end: 20210419
  37. METHYLPREDNISOLONE SODIUM SUCCINATE. [Concomitant]
     Active Substance: METHYLPREDNISOLONE SODIUM SUCCINATE
     Indication: PNEUMONIA
     Dates: start: 20210608, end: 20210612
  38. GLUTATHIONE [Concomitant]
     Active Substance: GLUTATHIONE
     Indication: HEPATIC FAILURE
     Dates: start: 20210609, end: 20210612
  39. BIFIDOBACTERIUM BIFIDUM [Concomitant]
     Active Substance: BIFIDOBACTERIUM BIFIDUM
     Indication: PROPHYLAXIS
     Dates: start: 20210609, end: 20210612
  40. BUDESONIDE. [Concomitant]
     Active Substance: BUDESONIDE
     Indication: PRODUCTIVE COUGH
     Dates: start: 20210608, end: 20210611

REACTIONS (1)
  - Cerebral infarction [Not Recovered/Not Resolved]

NARRATIVE: CASE EVENT DATE: 20210415
